FAERS Safety Report 9254626 (Version 1)
Quarter: 2013Q2

REPORT INFORMATION
  Report Type: Spontaneous
  Country: IT (occurrence: None)
  Receive Date: 20130419
  Receipt Date: 20130419
  Transmission Date: 20140414
  Serious: Yes (Other)
  Sender: FDA-Public Use
  Company Number: FK201301221

PATIENT
  Age: 57 Year
  Sex: Female

DRUGS (1)
  1. ADENOSINE [Suspect]

REACTIONS (1)
  - Torsade de pointes [None]
